FAERS Safety Report 12360485 (Version 2)
Quarter: 2016Q2

REPORT INFORMATION
  Report Type: Report from Study
  Country: AU (occurrence: AU)
  Receive Date: 20160512
  Receipt Date: 20160527
  Transmission Date: 20160815
  Serious: Yes (Hospitalization)
  Sender: FDA-Public Use
  Company Number: AU-ABBVIE-16K-008-1623555-00

PATIENT
  Age: 57 Year
  Sex: Female
  Weight: 75 kg

DRUGS (2)
  1. HUMIRA [Suspect]
     Active Substance: ADALIMUMAB
     Route: 058
     Dates: start: 20160504, end: 20160504
  2. HUMIRA [Suspect]
     Active Substance: ADALIMUMAB
     Indication: CROHN^S DISEASE
     Route: 058
     Dates: start: 20160421, end: 20160421

REACTIONS (7)
  - Stomatitis [Unknown]
  - Dysphagia [Unknown]
  - Pharyngeal inflammation [Unknown]
  - Pharyngeal ulceration [Unknown]
  - Dysphagia [Recovering/Resolving]
  - Mouth ulceration [Unknown]
  - Viral pharyngitis [Recovering/Resolving]

NARRATIVE: CASE EVENT DATE: 2016
